FAERS Safety Report 20612191 (Version 2)
Quarter: 2022Q2

REPORT INFORMATION
  Report Type: Spontaneous
  Country: JP (occurrence: JP)
  Receive Date: 20220318
  Receipt Date: 20220408
  Transmission Date: 20220720
  Serious: Yes (Other)
  Sender: FDA-Public Use
  Company Number: JP-SANOFI-2021SA161488

PATIENT
  Age: 5 Year
  Sex: Female
  Weight: 14.8 kg

DRUGS (28)
  1. SABRIL [Suspect]
     Active Substance: VIGABATRIN
     Indication: Infantile spasms
     Dosage: 50 MG/KG, BID (ACTUAL DOSE 1000 MG)
     Route: 048
     Dates: start: 20210514, end: 20211213
  2. SABRIL [Suspect]
     Active Substance: VIGABATRIN
     Dosage: 75 MG/KG, BID
     Route: 048
     Dates: start: 20191009, end: 20210513
  3. SABRIL [Suspect]
     Active Substance: VIGABATRIN
     Dosage: 25 MG/KG, BID (ACTUAL DOSE: 500 MG/DAY)
     Route: 048
     Dates: start: 20190926, end: 20191001
  4. SABRIL [Suspect]
     Active Substance: VIGABATRIN
     Dosage: 50 MG/KG, BID
     Route: 048
     Dates: start: 20191002, end: 20191008
  5. SABRIL [Suspect]
     Active Substance: VIGABATRIN
     Dosage: 30 MG/KG/DAY, BID (ACTUAL DOSE: 500 MG)
     Route: 048
     Dates: start: 20211214, end: 20220309
  6. VALPROATE SODIUM [Concomitant]
     Active Substance: VALPROATE SODIUM
     Indication: Infantile spasms
     Dosage: 230 MG/DAY
     Route: 048
     Dates: end: 20200802
  7. VALPROATE SODIUM [Concomitant]
     Active Substance: VALPROATE SODIUM
     Dosage: 350 MG/DAY
     Route: 048
     Dates: start: 20200803, end: 20200927
  8. VALPROATE SODIUM [Concomitant]
     Active Substance: VALPROATE SODIUM
     Dosage: 460 MG/DAY
     Route: 048
     Dates: start: 20200928
  9. ZONISAMIDE [Concomitant]
     Active Substance: ZONISAMIDE
     Indication: Infantile spasms
     Dosage: 50 MG/DAY (REDUCED)
     Route: 048
     Dates: start: 20210322
  10. ZONISAMIDE [Concomitant]
     Active Substance: ZONISAMIDE
     Dosage: 100 MG/DAY
     Route: 048
     Dates: end: 20210321
  11. ZONISAMIDE [Concomitant]
     Active Substance: ZONISAMIDE
     Dosage: 75 MG/DAY (REDUCED)
     Route: 048
     Dates: start: 20201228
  12. ZONISAMIDE [Concomitant]
     Active Substance: ZONISAMIDE
     Dosage: 50 MG/DAY
     Route: 048
     Dates: end: 20220309
  13. ZONISAMIDE [Concomitant]
     Active Substance: ZONISAMIDE
     Dosage: 50 MG/DAY
     Route: 048
  14. LEVETIRACETAM [Concomitant]
     Active Substance: LEVETIRACETAM
     Indication: Infantile spasms
     Dosage: 100 MG/DAY
     Route: 048
     Dates: end: 20200705
  15. LEVETIRACETAM [Concomitant]
     Active Substance: LEVETIRACETAM
     Dosage: 200 MG/DAY
     Route: 048
     Dates: start: 20200706, end: 20200712
  16. LEVETIRACETAM [Concomitant]
     Active Substance: LEVETIRACETAM
     Dosage: 300 MG/DAY
     Route: 048
     Dates: start: 20200713, end: 20200719
  17. LEVETIRACETAM [Concomitant]
     Active Substance: LEVETIRACETAM
     Dosage: 400 MG/DAY
     Route: 048
     Dates: start: 20200720, end: 20200726
  18. LEVETIRACETAM [Concomitant]
     Active Substance: LEVETIRACETAM
     Dosage: 500 MG/DAY
     Route: 048
     Dates: start: 20200727, end: 20200802
  19. LEVETIRACETAM [Concomitant]
     Active Substance: LEVETIRACETAM
     Dosage: 400 MG/DAY
     Route: 048
     Dates: start: 20200803, end: 20200809
  20. LEVETIRACETAM [Concomitant]
     Active Substance: LEVETIRACETAM
     Dosage: 300 MG/DAY
     Route: 048
     Dates: start: 20200810, end: 20200816
  21. LEVETIRACETAM [Concomitant]
     Active Substance: LEVETIRACETAM
     Dosage: 200 MG/DAY
     Route: 048
     Dates: start: 20200817, end: 20200823
  22. LEVETIRACETAM [Concomitant]
     Active Substance: LEVETIRACETAM
     Dosage: 100 MG/DAY
     Route: 048
     Dates: start: 20200824, end: 20200830
  23. LEVOCARNITINE [Concomitant]
     Active Substance: LEVOCARNITINE
     Indication: Prophylaxis
     Dosage: 600 MG/DAY
     Route: 048
  24. LEVOCARNITINE [Concomitant]
     Active Substance: LEVOCARNITINE
     Indication: Investigation
  25. CHLORAL HYDRATE [Concomitant]
     Active Substance: CHLORAL HYDRATE
     Indication: Prophylaxis
     Dosage: 250 MG/DAY
     Route: 054
     Dates: end: 20191003
  26. CHLORAL HYDRATE [Concomitant]
     Active Substance: CHLORAL HYDRATE
     Indication: Investigation
  27. ACETAMINOPHEN [Concomitant]
     Active Substance: ACETAMINOPHEN
     Indication: Product used for unknown indication
     Dosage: 150 MG/DAY
     Route: 054
     Dates: start: 20200112, end: 20200116
  28. PERAMPANEL [Concomitant]
     Active Substance: PERAMPANEL
     Indication: Infantile spasms
     Dosage: 2 MG/DAY
     Route: 048
     Dates: start: 20200415

REACTIONS (3)
  - Retinal disorder [Not Recovered/Not Resolved]
  - Retinogram abnormal [Not Recovered/Not Resolved]
  - Drug ineffective [Unknown]

NARRATIVE: CASE EVENT DATE: 20210514
